FAERS Safety Report 4890870-5 (Version None)
Quarter: 2005Q4

REPORT INFORMATION
  Report Type: 
  Country: None (occurrence: None)
  Receive Date: 20051220
  Receipt Date: 20051108
  Transmission Date: 20060501
  Serious: Yes (Other)
  Sender: FDA-Public Use
  Company Number: 424868

PATIENT
  Age: 54 Year
  Sex: Female
  Weight: 49.9 kg

DRUGS (1)
  1. BONIVA [Suspect]
     Dosage: ORAL
     Route: 048

REACTIONS (10)
  - ARTHRALGIA [None]
  - BACK PAIN [None]
  - BONE PAIN [None]
  - CHEST PAIN [None]
  - MUSCULOSKELETAL CHEST PAIN [None]
  - NAUSEA [None]
  - PAIN [None]
  - PAIN IN EXTREMITY [None]
  - PYREXIA [None]
  - SHOULDER PAIN [None]
